FAERS Safety Report 12855953 (Version 1)
Quarter: 2016Q4

REPORT INFORMATION
  Report Type: Spontaneous
  Country: US (occurrence: US)
  Receive Date: 20161017
  Receipt Date: 20161017
  Transmission Date: 20170207
  Serious: Yes (Life-Threatening, Other)
  Sender: FDA-Public Use
  Company Number: None

PATIENT
  Age: 60 Year
  Sex: Female
  Weight: 150.75 kg

DRUGS (16)
  1. AMLODIPINE [Concomitant]
     Active Substance: AMLODIPINE BESYLATE
  2. SYNTHROID [Concomitant]
     Active Substance: LEVOTHYROXINE SODIUM
  3. PROMENSIL [Concomitant]
  4. KCL [Concomitant]
     Active Substance: POTASSIUM CHLORIDE
  5. LEVEMIR [Concomitant]
     Active Substance: INSULIN DETEMIR
  6. ZYRTEC [Concomitant]
     Active Substance: CETIRIZINE HYDROCHLORIDE
  7. CALCIUM CARBONATE. [Concomitant]
     Active Substance: CALCIUM CARBONATE
  8. NATPARA (PARATHYROID HORMONE) [Suspect]
     Active Substance: PARATHYROID HORMONE
     Indication: HYPOCALCAEMIA
     Dosage: ?          OTHER STRENGTH:MCG;QUANTITY:1 CARTRIDGE;?
     Route: 030
     Dates: start: 20160812, end: 20160916
  9. PROGEST [Concomitant]
  10. CENTRUM VITAMIN/MINERAL [Concomitant]
  11. CLONODINE [Concomitant]
  12. MAGNESIUM [Concomitant]
     Active Substance: MAGNESIUM
  13. LISINOPRIL. [Concomitant]
     Active Substance: LISINOPRIL
  14. SINGULAIR [Concomitant]
     Active Substance: MONTELUKAST SODIUM
  15. FLOMAX [Concomitant]
     Active Substance: TAMSULOSIN HYDROCHLORIDE
  16. NOVOLOG [Concomitant]
     Active Substance: INSULIN ASPART

REACTIONS (12)
  - Pain [None]
  - Dyspnoea [None]
  - Joint injury [None]
  - Product quality issue [None]
  - Stupor [None]
  - Feeling abnormal [None]
  - Fatigue [None]
  - Paraesthesia [None]
  - Palpitations [None]
  - Gait disturbance [None]
  - Angina pectoris [None]
  - Motor dysfunction [None]

NARRATIVE: CASE EVENT DATE: 20160812
